FAERS Safety Report 20013854 (Version 1)
Quarter: 2021Q4

REPORT INFORMATION
  Report Type: Spontaneous
  Country: FR (occurrence: FR)
  Receive Date: 20211029
  Receipt Date: 20211029
  Transmission Date: 20220303
  Serious: Yes (Hospitalization)
  Sender: FDA-Public Use
  Company Number: None

PATIENT
  Age: 65 Year
  Sex: Female
  Weight: 60 kg

DRUGS (13)
  1. DEXAMETHASONE [Suspect]
     Active Substance: DEXAMETHASONE
     Indication: Plasma cell myeloma
     Dosage: UNK
     Route: 041
     Dates: start: 20210118, end: 202103
  2. DEXAMETHASONE [Suspect]
     Active Substance: DEXAMETHASONE
     Indication: Cryoglobulinaemia
  3. MIRTAZAPINE [Suspect]
     Active Substance: MIRTAZAPINE
     Indication: Depression
     Dosage: 30 MILLIGRAM, QD
     Route: 048
  4. TRIMETHOPRIM [Suspect]
     Active Substance: TRIMETHOPRIM
     Indication: Opportunistic infection prophylaxis
     Dosage: 160 MILLIGRAM, QW
     Route: 048
  5. SULFAMETHOXAZOLE [Suspect]
     Active Substance: SULFAMETHOXAZOLE
     Indication: Opportunistic infection prophylaxis
     Dosage: 800 MILLIGRAM, QW
     Route: 048
  6. OXYCODONE HYDROCHLORIDE [Suspect]
     Active Substance: OXYCODONE HYDROCHLORIDE
     Indication: Pain
     Dosage: 140 MILLIGRAM, QD
     Route: 048
  7. KYPROLIS [Suspect]
     Active Substance: CARFILZOMIB
     Indication: Plasma cell myeloma
     Dosage: 86 MILLIGRAM (J1, J2 ET J8, J9)
     Route: 041
     Dates: start: 20210118, end: 20210323
  8. KYPROLIS [Suspect]
     Active Substance: CARFILZOMIB
     Indication: Cryoglobulinaemia
  9. DARZALEX [Suspect]
     Active Substance: DARATUMUMAB
     Indication: Cryoglobulinaemia
     Dosage: 1800 MILLIGRAM, BIWEEKLY
     Route: 058
     Dates: start: 20210413
  10. DARZALEX [Suspect]
     Active Substance: DARATUMUMAB
     Indication: Plasma cell myeloma
     Dosage: 920 MILLIGRAM, QW
     Route: 041
     Dates: start: 20210210, end: 20210329
  11. LEUCOVORIN [Suspect]
     Active Substance: LEUCOVORIN
     Indication: Vitamin supplementation
     Dosage: 5 MILLIGRAM, QD
     Route: 048
  12. OXAZEPAM [Suspect]
     Active Substance: OXAZEPAM
     Indication: Anxiety
     Dosage: 80 MILLIGRAM, QD
     Route: 048
  13. HYDROCORTISONE ACEPONATE [Suspect]
     Active Substance: HYDROCORTISONE ACEPONATE
     Indication: Secondary adrenocortical insufficiency
     Dosage: 30 MILLIGRAM, QD
     Route: 048

REACTIONS (1)
  - Uveitis [Not Recovered/Not Resolved]

NARRATIVE: CASE EVENT DATE: 20210401
